FAERS Safety Report 10521248 (Version 2)
Quarter: 2014Q4

REPORT INFORMATION
  Report Type: Report from Study
  Country: NL (occurrence: NL)
  Receive Date: 20141016
  Receipt Date: 20141119
  Transmission Date: 20150528
  Serious: Yes (Hospitalization, Other)
  Sender: FDA-Public Use
  Company Number: NL-AMGEN-NLDSL2011071907

PATIENT
  Age: 85 Year
  Sex: Male

DRUGS (2)
  1. INSULIN [Concomitant]
     Active Substance: INSULIN NOS
  2. ARANESP [Suspect]
     Active Substance: DARBEPOETIN ALFA
     Indication: PRODUCT USED FOR UNKNOWN INDICATION
     Dosage: 0.3 ML (200MCG/ML), Q2WK
     Route: 065

REACTIONS (8)
  - Abdominal distension [Unknown]
  - Confusional state [Unknown]
  - Ascites [Unknown]
  - Hospitalisation [Unknown]
  - Dyspnoea exertional [Not Recovered/Not Resolved]
  - Localised oedema [Unknown]
  - Pallor [Not Recovered/Not Resolved]
  - Dementia [Unknown]
